FAERS Safety Report 7458526-2 (Version None)
Quarter: 2011Q2

REPORT INFORMATION
  Report Type: 
  Country: None (occurrence: None)
  Receive Date: 20110504
  Receipt Date: 20110426
  Transmission Date: 20111010
  Serious: Yes (Hospitalization)
  Sender: FDA-Public Use
  Company Number: PHHY2011FR35809

PATIENT
  Sex: Female

DRUGS (13)
  1. LOVENOX [Concomitant]
  2. FORMOTEROL FUMARATE [Concomitant]
  3. MIDAZOLAM [Suspect]
     Dosage: UNK
     Route: 042
     Dates: start: 20110401
  4. KETAMINE [Suspect]
     Dosage: UNK
     Route: 042
     Dates: start: 20110401
  5. TAZOCILLINE [Concomitant]
     Dosage: UNK
     Dates: start: 20110307, end: 20110301
  6. BECLOMETHASONE DIPROPIONATE [Concomitant]
  7. XYLOCAINE [Suspect]
     Dosage: UNK
     Route: 042
     Dates: start: 20110401
  8. CORDARONE [Concomitant]
  9. PREVISCAN [Concomitant]
     Dosage: 20 MG, UNK
  10. VANCOMYCIN [Suspect]
     Indication: DEVICE RELATED INFECTION
     Dosage: UNK
     Route: 042
     Dates: start: 20110306, end: 20110401
  11. RIFAMPICIN [Concomitant]
     Dosage: UNK
     Dates: start: 20110314, end: 20110323
  12. TAREG [Concomitant]
  13. ALLOPURINOL [Concomitant]

REACTIONS (4)
  - SKIN LESION [None]
  - ERYTHEMA [None]
  - PYREXIA [None]
  - INFLAMMATION OF WOUND [None]
